FAERS Safety Report 5356121-2 (Version None)
Quarter: 2007Q2

REPORT INFORMATION
  Report Type: 
  Country: None (occurrence: None)
  Receive Date: 20070613
  Receipt Date: 20070608
  Transmission Date: 20071010
  Serious: Yes (Other)
  Sender: FDA-Public Use
  Company Number: PE-ROXANE LABORATORIES, INC-2007-BP-07769RO

PATIENT
  Age: 64 Year
  Sex: Female
  Weight: 72 kg

DRUGS (1)
  1. TAMOXIFEN CITRATE [Suspect]
     Indication: BREAST CANCER
     Dosage: 20 MG DAILY
     Dates: start: 20040101, end: 20060629

REACTIONS (13)
  - ALOPECIA [None]
  - ANOREXIA [None]
  - ASTHENIA [None]
  - AVERSION [None]
  - BILIRUBINURIA [None]
  - CONSTIPATION [None]
  - FATIGUE [None]
  - FOOD INTOLERANCE [None]
  - HEPATIC STEATOSIS [None]
  - HEPATITIS A [None]
  - HEPATOTOXICITY [None]
  - HYPERSOMNIA [None]
  - WEIGHT DECREASED [None]
